FAERS Safety Report 20674635 (Version 5)
Quarter: 2022Q2

REPORT INFORMATION
  Report Type: Report from Study
  Country: US (occurrence: US)
  Receive Date: 20220405
  Receipt Date: 20220526
  Transmission Date: 20220721
  Serious: Yes (Hospitalization)
  Sender: FDA-Public Use
  Company Number: US-JNJFOC-20220363553

PATIENT
  Age: 15 Year
  Sex: Female
  Weight: 52.3 kg

DRUGS (12)
  1. INFLIXIMAB [Suspect]
     Active Substance: INFLIXIMAB
     Indication: Inflammatory bowel disease
     Route: 042
     Dates: start: 201203
  2. RUXOLITINIB [Concomitant]
     Active Substance: RUXOLITINIB
     Indication: Product used for unknown indication
     Route: 065
  3. ENTYVIO [Concomitant]
     Active Substance: VEDOLIZUMAB
     Dates: start: 20190225
  4. ILARIS [Concomitant]
     Active Substance: CANAKINUMAB
     Dates: start: 202005
  5. OMEGA-3 FATTY ACIDS [Concomitant]
     Active Substance: OMEGA-3 FATTY ACIDS
  6. HERBALS\TURMERIC [Concomitant]
     Active Substance: HERBALS\TURMERIC
  7. ASCORBIC ACID [Concomitant]
     Active Substance: ASCORBIC ACID
  8. LORATADINE [Concomitant]
     Active Substance: LORATADINE
  9. FLUTICASONE [Concomitant]
     Active Substance: FLUTICASONE
  10. ONDANSETRON [Concomitant]
     Active Substance: ONDANSETRON
  11. ALBUTEROL [Concomitant]
     Active Substance: ALBUTEROL
  12. ERGOCALCIFEROL [Concomitant]
     Active Substance: ERGOCALCIFEROL

REACTIONS (1)
  - Rectal stenosis [Recovered/Resolved]

NARRATIVE: CASE EVENT DATE: 20220321
